FAERS Safety Report 8160415-5 (Version None)
Quarter: 2012Q1

REPORT INFORMATION
  Report Type: 
  Country: None (occurrence: None)
  Receive Date: 20120223
  Receipt Date: 20120216
  Transmission Date: 20120608
  Serious: Yes (Hospitalization)
  Sender: FDA-Public Use
  Company Number: US-PURDUE-USA-2012-0082627

PATIENT
  Sex: Female

DRUGS (2)
  1. LORTAB [Concomitant]
     Indication: PAIN
  2. OXYCONTIN [Suspect]
     Indication: CANCER PAIN
     Dosage: 20 MG, Q12H
     Route: 048

REACTIONS (1)
  - THROMBOSIS [None]
